FAERS Safety Report 14815498 (Version 1)
Quarter: 2018Q2

REPORT INFORMATION
  Report Type: Spontaneous
  Country: US (occurrence: US)
  Receive Date: 20180417
  Receipt Date: 20180417
  Transmission Date: 20180711
  Serious: Yes (Life-Threatening, Disabling, Other)
  Sender: FDA-Public Use
  Company Number: None

PATIENT
  Age: 69 Year
  Sex: Female
  Weight: 63.96 kg

DRUGS (5)
  1. LEVOTHYROXIN [Concomitant]
     Active Substance: LEVOTHYROXINE
  2. MULTIPLE SUPPLEMENTS [Concomitant]
  3. APIDRA [Suspect]
     Active Substance: INSULIN GLULISINE
     Indication: TYPE 1 DIABETES MELLITUS
     Dosage: ?          QUANTITY:28 DAYS;?
     Route: 058
     Dates: start: 20050622
  4. LANTUS [Suspect]
     Active Substance: INSULIN GLARGINE
  5. NIACIN. [Concomitant]
     Active Substance: NIACIN

REACTIONS (2)
  - Wrist fracture [None]
  - Fall [None]

NARRATIVE: CASE EVENT DATE: 20180307
